FAERS Safety Report 10340499 (Version 2)
Quarter: 2014Q3

REPORT INFORMATION
  Report Type: Spontaneous
  Country: GB (occurrence: GB)
  Receive Date: 20140724
  Receipt Date: 20140811
  Transmission Date: 20150326
  Serious: Yes (Other)
  Sender: FDA-Public Use
  Company Number: GB-PFIZER INC-2014202290

PATIENT
  Age: 74 Year
  Sex: Male

DRUGS (1)
  1. GABAPENTIN. [Suspect]
     Active Substance: GABAPENTIN
     Indication: NEURALGIA
     Dosage: 3 DF, DAILY
     Route: 065
     Dates: end: 20140704

REACTIONS (7)
  - Restlessness [Unknown]
  - Chest pain [Unknown]
  - Convulsion [Unknown]
  - Anxiety [Unknown]
  - Confusional state [Unknown]
  - Panic reaction [Unknown]
  - Thinking abnormal [Unknown]
